FAERS Safety Report 7414278-3 (Version None)
Quarter: 2011Q2

REPORT INFORMATION
  Report Type: 
  Country: None (occurrence: None)
  Receive Date: 20110411
  Receipt Date: 20110411
  Transmission Date: 20111010
  Serious: No
  Sender: FDA-Public Use
  Company Number: None

PATIENT
  Age: 16 Month
  Sex: Female
  Weight: 9.5255 kg

DRUGS (1)
  1. ACETAMINOPHEN [Suspect]
     Indication: TEETHING
     Dosage: .8ML 4X/DAY PO
     Route: 048
     Dates: start: 20110401, end: 20110402

REACTIONS (3)
  - PRODUCT QUALITY ISSUE [None]
  - VOMITING [None]
  - DIARRHOEA [None]
